FAERS Safety Report 16552598 (Version 1)
Quarter: 2019Q3

REPORT INFORMATION
  Report Type: Spontaneous
  Country: US (occurrence: US)
  Receive Date: 20190710
  Receipt Date: 20190710
  Transmission Date: 20191004
  Serious: No
  Sender: FDA-Public Use
  Company Number: US-PFIZER INC-2019285252

PATIENT
  Sex: Female

DRUGS (1)
  1. DEPO-PROVERA [Suspect]
     Active Substance: MEDROXYPROGESTERONE ACETATE
     Dosage: UNK

REACTIONS (6)
  - Abdominal distension [Unknown]
  - Nausea [Unknown]
  - Weight increased [Unknown]
  - Breast pain [Unknown]
  - Withdrawal syndrome [Unknown]
  - Fluid retention [Unknown]
